FAERS Safety Report 12754543 (Version 2)
Quarter: 2016Q4

REPORT INFORMATION
  Report Type: Spontaneous
  Country: US (occurrence: US)
  Receive Date: 20160915
  Receipt Date: 20161025
  Transmission Date: 20170207
  Serious: Yes (Death, Hospitalization, Other)
  Sender: FDA-Public Use
  Company Number: US-BAUSCH-BL-2016-022540

PATIENT
  Age: 72 Year
  Sex: Male

DRUGS (5)
  1. XIFAXAN [Suspect]
     Active Substance: RIFAXIMIN
     Indication: AMMONIA INCREASED
     Route: 065
     Dates: start: 201608
  2. METOPROLOL SUCCINATE. [Concomitant]
     Active Substance: METOPROLOL SUCCINATE
     Indication: BLOOD PRESSURE ABNORMAL
  3. LACTULOSE. [Suspect]
     Active Substance: LACTULOSE
     Indication: STENT PLACEMENT
  4. COGENTIN [Concomitant]
     Active Substance: BENZTROPINE MESYLATE
     Indication: PRODUCT USED FOR UNKNOWN INDICATION
  5. LACTULOSE. [Suspect]
     Active Substance: LACTULOSE
     Indication: PORTAL SHUNT PROCEDURE
     Dosage: 10 GM/15 ML SEVERAL TIMES A DAY
     Route: 065
     Dates: start: 20140714

REACTIONS (9)
  - Fall [Unknown]
  - Weight decreased [Unknown]
  - Hospice care [Unknown]
  - Hepatic failure [Unknown]
  - Swelling [Unknown]
  - Renal failure [Unknown]
  - Eating disorder [Unknown]
  - Non-alcoholic steatohepatitis [Fatal]
  - Oesophageal haemorrhage [Unknown]

NARRATIVE: CASE EVENT DATE: 2014
